FAERS Safety Report 10574321 (Version 2)
Quarter: 2014Q4

REPORT INFORMATION
  Report Type: Report from Study
  Country: BR (occurrence: BR)
  Receive Date: 20141110
  Receipt Date: 20141121
  Transmission Date: 20150529
  Serious: Yes (Other)
  Sender: FDA-Public Use
  Company Number: PHHY2014BR146415

PATIENT
  Sex: Male

DRUGS (2)
  1. ENALAPRIL [Concomitant]
     Active Substance: ENALAPRIL
     Indication: HYPERTENSION
     Dosage: 1 DF (TABLET), PRN
     Route: 048
  2. EXELON PATCH [Suspect]
     Active Substance: RIVASTIGMINE
     Indication: MEMORY IMPAIRMENT
     Dosage: 4.6 MG, QD (ONE ADHESIVE OF 9 MG/5 CM2, DAILY)
     Route: 062

REACTIONS (4)
  - Accident [Unknown]
  - Gait disturbance [Recovering/Resolving]
  - Femur fracture [Recovered/Resolved]
  - Fall [Recovering/Resolving]
